FAERS Safety Report 24951551 (Version 1)
Quarter: 2025Q1

REPORT INFORMATION
  Report Type: Spontaneous
  Country: US (occurrence: US)
  Receive Date: 20250210
  Receipt Date: 20250210
  Transmission Date: 20250409
  Serious: No
  Sender: INTRA-CELLULAR THERAPIES
  Company Number: US-INTRA-CELLULAR THERAPIES, INC.-2024ICT01855

PATIENT
  Age: 64 Year
  Sex: Female
  Weight: 69.4 kg

DRUGS (3)
  1. CAPLYTA [Suspect]
     Active Substance: LUMATEPERONE
     Indication: Anxiety
     Dosage: 42 MG, 1X/DAY
     Route: 048
     Dates: start: 202411
  2. CAPLYTA [Suspect]
     Active Substance: LUMATEPERONE
     Indication: Depression
  3. ATOMOXETINE [Concomitant]
     Active Substance: ATOMOXETINE
     Dosage: 40 MG, 2X/DAY

REACTIONS (4)
  - Limb discomfort [Not Recovered/Not Resolved]
  - Balance disorder [Not Recovered/Not Resolved]
  - Dizziness [Not Recovered/Not Resolved]
  - Off label use [Not Recovered/Not Resolved]

NARRATIVE: CASE EVENT DATE: 20241101
